FAERS Safety Report 6174391-8 (Version None)
Quarter: 2009Q2

REPORT INFORMATION
  Report Type: 
  Country: None (occurrence: None)
  Receive Date: 20090430
  Receipt Date: 20090422
  Transmission Date: 20091009
  Serious: No
  Sender: FDA-Public Use
  Company Number: US-BAXTER-2009BH006626

PATIENT
  Age: 49 Year
  Sex: Female
  Weight: 54 kg

DRUGS (4)
  1. HEPARIN SODIUM INJECTION [Suspect]
     Indication: URINARY TRACT PAIN
     Route: 017
     Dates: start: 20090421, end: 20090421
  2. SODIUM BICARBONATE [Concomitant]
     Indication: CYSTITIS INTERSTITIAL
     Route: 017
     Dates: start: 20090421, end: 20090421
  3. LIDOCAINE [Concomitant]
     Indication: CYSTITIS INTERSTITIAL
     Route: 017
     Dates: start: 20090421, end: 20090421
  4. STERILE WATER [Concomitant]
     Indication: CYSTITIS INTERSTITIAL
     Route: 017
     Dates: start: 20090421, end: 20090421

REACTIONS (3)
  - DRUG DISPENSING ERROR [None]
  - DRUG INEFFECTIVE [None]
  - EXPIRED DRUG ADMINISTERED [None]
